FAERS Safety Report 9663919 (Version 3)
Quarter: 2013Q4

REPORT INFORMATION
  Report Type: Spontaneous
  Country: US (occurrence: US)
  Receive Date: 20131101
  Receipt Date: 20131122
  Transmission Date: 20140711
  Serious: Yes (Hospitalization)
  Sender: FDA-Public Use
  Company Number: US-BAXTER-2013BAX042538

PATIENT
  Age: 66 Year
  Sex: Male

DRUGS (2)
  1. DIANEAL LOW CALCIUM [Suspect]
     Indication: PERITONEAL DIALYSIS
     Route: 033
     Dates: start: 201309, end: 201311
  2. DIANEAL LOW CALCIUM [Suspect]
     Indication: PERITONEAL DIALYSIS
     Route: 033
     Dates: start: 201309, end: 201311

REACTIONS (4)
  - Azotaemia [Recovering/Resolving]
  - Peritoneal dialysis complication [Recovered/Resolved]
  - Dyspnoea [Recovering/Resolving]
  - Procedural pain [Recovered/Resolved]
